FAERS Safety Report 8962462 (Version 1)
Quarter: 2012Q4

REPORT INFORMATION
  Report Type: Report from Study
  Country: DE (occurrence: DE)
  Receive Date: 20121213
  Receipt Date: 20121213
  Transmission Date: 20130627
  Serious: Yes (Hospitalization)
  Sender: FDA-Public Use
  Company Number: DE-BRISTOL-MYERS SQUIBB COMPANY-17170192

PATIENT
  Age: 70 Year
  Sex: Male
  Weight: 69.6 kg

DRUGS (19)
  1. GLUCOSE [Concomitant]
     Dates: start: 20111130, end: 20111202
  2. KEVATRIL [Concomitant]
     Dates: start: 20111201, end: 20111202
  3. DEXAMETHASONE [Concomitant]
  4. CISPLATIN [Suspect]
     Indication: NON-SMALL CELL LUNG CANCER
     Dosage: Last dose:02Dec11.
     Dates: start: 20111201
  5. GEMCITABINE HCL [Suspect]
     Indication: NON-SMALL CELL LUNG CANCER
     Dosage: Last dose:02Dec11.
     Dates: start: 20111201
  6. CONCOR [Suspect]
     Dates: start: 20111201
  7. LASIX [Suspect]
     Dates: start: 20111202, end: 20111203
  8. ACETYLSALICYLIC ACID [Concomitant]
     Dates: start: 2005
  9. NOVALGIN [Concomitant]
     Dates: start: 2011
  10. ZOSYN [Concomitant]
     Dates: start: 20111123
  11. CLEXANE [Concomitant]
     Dates: start: 20111120
  12. NOVODIGAL [Concomitant]
     Dates: start: 20111124, end: 20111209
  13. PANTOZOL [Concomitant]
  14. PARACODEINE [Concomitant]
     Dates: start: 20111126
  15. SORBITOL [Concomitant]
     Dates: start: 20111103, end: 20111120
  16. LIPOVENOES [Concomitant]
     Dates: start: 20111120, end: 20111130
  17. CERNEVIT [Concomitant]
     Dates: start: 20111120, end: 20111130
  18. SODIUM [Concomitant]
     Dates: start: 20111130, end: 20111202
  19. POTASSIUM CHLORIDE [Concomitant]
     Dates: start: 20111130, end: 20111202

REACTIONS (1)
  - Orthostatic hypotension [Recovered/Resolved]
